FAERS Safety Report 17044053 (Version 1)
Quarter: 2019Q4

REPORT INFORMATION
  Report Type: Spontaneous
  Country: US (occurrence: US)
  Receive Date: 20191115
  Receipt Date: 20191115
  Transmission Date: 20200122
  Serious: Yes (Life-Threatening, Hospitalization, Disabling)
  Sender: FDA-Public Use
  Company Number: None

PATIENT
  Age: 45 Year
  Sex: Male
  Weight: 70.65 kg

DRUGS (15)
  1. DIAZEPAM. [Concomitant]
     Active Substance: DIAZEPAM
  2. LISINOPRIL. [Concomitant]
     Active Substance: LISINOPRIL
  3. BENADRYL [Suspect]
     Active Substance: DIPHENHYDRAMINE HYDROCHLORIDE
  4. METAMUCIL [Concomitant]
     Active Substance: PLANTAGO SEED
  5. PAXIL [Concomitant]
     Active Substance: PAROXETINE HYDROCHLORIDE
  6. DICYCLOMINE [Concomitant]
     Active Substance: DICYCLOMINE HYDROCHLORIDE
  7. FINESTERIDE [Concomitant]
     Active Substance: FINASTERIDE
  8. MINOXIDIL. [Concomitant]
     Active Substance: MINOXIDIL
  9. DOCUSATE SODIUM. [Concomitant]
     Active Substance: DOCUSATE SODIUM
  10. DEXEDRINE [Concomitant]
     Active Substance: DEXTROAMPHETAMINE SULFATE
  11. TRAZODONE [Concomitant]
     Active Substance: TRAZODONE HYDROCHLORIDE
  12. XANAX [Suspect]
     Active Substance: ALPRAZOLAM
     Indication: ANXIETY
     Dosage: ?          QUANTITY:6 TABLET(S);?
     Route: 060
     Dates: start: 20190101
  13. SILDENAFIL. [Concomitant]
     Active Substance: SILDENAFIL
  14. OMEPRAZOLE. [Concomitant]
     Active Substance: OMEPRAZOLE
  15. ATIVAN [Concomitant]
     Active Substance: LORAZEPAM

REACTIONS (13)
  - Decreased activity [None]
  - Dysphemia [None]
  - Pain [None]
  - Screaming [None]
  - Anxiety [None]
  - Suicidal ideation [None]
  - Discomfort [None]
  - General physical health deterioration [None]
  - Drug withdrawal syndrome [None]
  - Stress [None]
  - Gait inability [None]
  - Tremor [None]
  - Brain injury [None]

NARRATIVE: CASE EVENT DATE: 20190514
